FAERS Safety Report 9039695 (Version 1)
Quarter: 2013Q1

REPORT INFORMATION
  Report Type: Report from Study
  Country: US (occurrence: US)
  Receive Date: 20130130
  Receipt Date: 20130130
  Transmission Date: 20140127
  Serious: No
  Sender: FDA-Public Use
  Company Number: US-ABBOTT-12P-163-0947372-00

PATIENT
  Sex: Male
  Weight: 81.27 kg

DRUGS (14)
  1. HUMIRA 40 MG/0.8 ML PEN [Suspect]
     Indication: RHEUMATOID ARTHRITIS
     Dates: start: 20120221
  2. HUMIRA 40 MG/0.8 ML PEN [Suspect]
  3. GLUCOSAMINE CHONDROITIN [Concomitant]
     Indication: RHEUMATOID ARTHRITIS
  4. COZAAR [Concomitant]
     Indication: HYPERTENSION
  5. ACIPHEX [Concomitant]
     Indication: PROPHYLAXIS AGAINST GASTROINTESTINAL ULCER
  6. ACIPHEX [Concomitant]
     Indication: COLITIS
  7. COLAZAL [Concomitant]
     Indication: COLITIS
  8. HYOSCYAMINE [Concomitant]
     Indication: MUSCLE SPASMS
  9. LIPITOR [Concomitant]
     Indication: BLOOD CHOLESTEROL INCREASED
  10. BABY ASPIRIN [Concomitant]
     Indication: PRODUCT USED FOR UNKNOWN INDICATION
  11. IMODIUM [Concomitant]
     Indication: DIARRHOEA
  12. MULTIVITAMIN [Concomitant]
     Indication: VITAMIN SUPPLEMENTATION
  13. VITAMIN D [Concomitant]
     Indication: VITAMIN SUPPLEMENTATION
  14. FISH OIL [Concomitant]
     Indication: VITAMIN SUPPLEMENTATION

REACTIONS (3)
  - Feeling abnormal [Recovered/Resolved]
  - Bronchitis [Recovered/Resolved]
  - Nasopharyngitis [Recovered/Resolved]
